FAERS Safety Report 7806110-0 (Version None)
Quarter: 2011Q4

REPORT INFORMATION
  Report Type: 
  Country: None (occurrence: None)
  Receive Date: 20111007
  Receipt Date: 20111007
  Transmission Date: 20120403
  Serious: Yes (Other)
  Sender: FDA-Public Use
  Company Number: None

PATIENT
  Sex: Female
  Weight: 54.4316 kg

DRUGS (1)
  1. AMITIZA [Suspect]

REACTIONS (4)
  - FATIGUE [None]
  - PRESYNCOPE [None]
  - VOMITING [None]
  - DIARRHOEA [None]
